FAERS Safety Report 5841884-X (Version None)
Quarter: 2008Q3

REPORT INFORMATION
  Report Type: 
  Country: None (occurrence: None)
  Receive Date: 20080811
  Receipt Date: 20080811
  Transmission Date: 20090109
  Serious: No
  Sender: FDA-Public Use
  Company Number: None

PATIENT
  Age: 64 Year
  Sex: Female
  Weight: 64.4108 kg

DRUGS (1)
  1. CIPRO [Suspect]
     Indication: ENDODONTIC PROCEDURE
     Dates: start: 20080415, end: 20080425

REACTIONS (2)
  - NECK PAIN [None]
  - TENDON RUPTURE [None]
